FAERS Safety Report 9172160 (Version 1)
Quarter: 2013Q1

REPORT INFORMATION
  Report Type: Report from Study
  Country: DE (occurrence: DE)
  Receive Date: 20130319
  Receipt Date: 20130319
  Transmission Date: 20140127
  Serious: Yes (Death)
  Sender: FDA-Public Use
  Company Number: DE-BAXTER-2013BAX009622

PATIENT
  Age: 57 Year
  Sex: Male
  Weight: 92 kg

DRUGS (3)
  1. ADVATE [Suspect]
     Indication: FACTOR VIII DEFICIENCY
     Route: 042
     Dates: start: 20040312
  2. ADVATE [Suspect]
     Indication: PROPHYLAXIS
     Route: 042
     Dates: start: 20050412
  3. ADVATE [Suspect]
     Route: 042
     Dates: start: 20120131, end: 20120302

REACTIONS (1)
  - Death [Fatal]
